FAERS Safety Report 9739059 (Version 1)
Quarter: 2013Q4

REPORT INFORMATION
  Report Type: Spontaneous
  Country: US (occurrence: US)
  Receive Date: 20131209
  Receipt Date: 20131209
  Transmission Date: 20140711
  Serious: Yes (Hospitalization)
  Sender: FDA-Public Use
  Company Number: US-BAYER-2013-148600

PATIENT
  Age: 30 Year
  Sex: Female
  Weight: 90 kg

DRUGS (6)
  1. YAZ [Suspect]
     Dosage: UNK
  2. YASMIN [Suspect]
     Dosage: UNK
  3. DEXAMETHASONE [Concomitant]
     Dosage: 0.25 MG, DAILY
     Route: 048
  4. LEXAPRO [Concomitant]
     Dosage: 20 MG, DAILY
     Route: 048
  5. DILAUDID [Concomitant]
     Dosage: UNK
  6. XANAX [Concomitant]
     Indication: ANXIETY
     Dosage: UNK

REACTIONS (1)
  - Pulmonary embolism [Recovering/Resolving]
